FAERS Safety Report 9491158 (Version 1)
Quarter: 2013Q3

REPORT INFORMATION
  Report Type: Spontaneous
  Country: US (occurrence: None)
  Receive Date: 20130827
  Receipt Date: 20130827
  Transmission Date: 20140515
  Serious: Yes (Other)
  Sender: FDA-Public Use
  Company Number: MC201300411

PATIENT
  Age: 36 Year
  Sex: Male

DRUGS (6)
  1. ANGIOMAX, ANGIOX (BIVALIRUDIN) INJECTION [Suspect]
     Dosage: UNK FIRST PCI, INTRAVENOUS
     Route: 042
     Dates: start: 20130812, end: 20130812
  2. HEPARIN [Suspect]
     Dosage: UNKNOWN DOSE GIVEN IN CATH LAB FOR DIAGNOSTIC PROCEDURE
     Dates: end: 20130812
  3. INTEGRILIN [Suspect]
     Dosage: UNK DURING 2ND PCI, INTRACORONARY
  4. PLAVIX (CLOPIDOGREL BISULFATE) [Concomitant]
  5. GLYCOPROTEIN IIB/IIIA INHIBITOR [Concomitant]
  6. HEPARIN (HEPARIN SODIUM) [Concomitant]

REACTIONS (4)
  - Arteriospasm coronary [None]
  - Coronary artery thrombosis [None]
  - Thrombosis in device [None]
  - Coagulation time abnormal [None]
